FAERS Safety Report 6141436-0 (Version None)
Quarter: 2009Q2

REPORT INFORMATION
  Report Type: 
  Country: None (occurrence: None)
  Receive Date: 20090402
  Receipt Date: 20090313
  Transmission Date: 20091009
  Serious: Yes (Life-Threatening, Hospitalization)
  Sender: FDA-Public Use
  Company Number: JP-MERCK-0811USA03998

PATIENT
  Age: 75 Year
  Sex: Female

DRUGS (2)
  1. PEPCID [Suspect]
     Route: 048
     Dates: start: 20080828
  2. CLARITH [Suspect]
     Route: 065
     Dates: start: 20080828

REACTIONS (1)
  - TORSADE DE POINTES [None]
